FAERS Safety Report 5907748-8 (Version None)
Quarter: 2008Q4

REPORT INFORMATION
  Report Type: 
  Country: None (occurrence: None)
  Receive Date: 20081003
  Receipt Date: 20080926
  Transmission Date: 20090506
  Serious: Yes (Death, Other)
  Sender: FDA-Public Use
  Company Number: GB-ASTRAZENECA-2008GB01651

PATIENT
  Age: 31 Year
  Sex: Female
  Weight: 55.5 kg

DRUGS (8)
  1. QUETIAPINE FUMARATE [Suspect]
     Dosage: 250MG
     Route: 048
  2. PREGABALIN [Suspect]
  3. AMITRIPTYLINE HCL [Suspect]
  4. BUSPIRONE HCL [Suspect]
  5. DIAZEPAM [Suspect]
  6. HUMALOG [Suspect]
  7. LEVEMIR [Suspect]
  8. VALPROATE SODIUM [Suspect]

REACTIONS (3)
  - CARDIAC DEATH [None]
  - DIABETES MELLITUS INADEQUATE CONTROL [None]
  - GENERALISED ANXIETY DISORDER [None]
